FAERS Safety Report 19089035 (Version 1)
Quarter: 2021Q2

REPORT INFORMATION
  Report Type: Spontaneous
  Country: US (occurrence: US)
  Receive Date: 20210403
  Receipt Date: 20210403
  Transmission Date: 20210717
  Serious: No
  Sender: FDA-Public Use
  Company Number: US-ORGANON-O2103USA001785

PATIENT
  Age: 80 Year
  Sex: Male
  Weight: 92 kg

DRUGS (17)
  1. SINEMET [Suspect]
     Active Substance: CARBIDOPA\LEVODOPA
     Indication: PARKINSON^S DISEASE
     Dosage: IMMEDIATE RELEASE TABLET
     Route: 048
  2. SINEMET [Suspect]
     Active Substance: CARBIDOPA\LEVODOPA
     Dosage: 48.75/ 195 MILLIGRAM
     Route: 048
  3. CYANOCOBALAMIN. [Concomitant]
     Active Substance: CYANOCOBALAMIN
     Dosage: 1000 MICROGRAM, DAILY
     Route: 048
  4. PANTOPRAZOLE [Concomitant]
     Active Substance: PANTOPRAZOLE
     Dosage: 40 MILLIGRAM, DAILY
     Route: 048
  5. POLYETHYLENE GLYCOL 3350. [Concomitant]
     Active Substance: POLYETHYLENE GLYCOL 3350
     Indication: CONSTIPATION
     Dosage: 17 GRAM EVERY 6 HOURS AS NEEDED
     Route: 048
  6. FINASTERIDE. [Concomitant]
     Active Substance: FINASTERIDE
     Dosage: 5 MILLIGRAM, DAILY
     Route: 048
  7. DESIPRAMINE HCL [Concomitant]
     Active Substance: DESIPRAMINE HYDROCHLORIDE
     Dosage: 50 MILLIGRAM AT BED TIME
     Route: 048
  8. LISINOPRIL. [Concomitant]
     Active Substance: LISINOPRIL
     Dosage: 2.5 MILLIGRAM, DAILY
     Route: 048
  9. MELATONIN [Concomitant]
     Active Substance: MELATONIN
     Dosage: 3 MILLIGRAM AT BED TIME
     Route: 048
  10. CHOLECALCIFEROL SANDOZ [Concomitant]
     Active Substance: CHOLECALCIFEROL
     Dosage: 1000 UNITS, DAILY
     Route: 048
  11. GABAPENTIN. [Concomitant]
     Active Substance: GABAPENTIN
     Dosage: 600 MG IN THE MORNING AND 900 MG AT BEDTIME
     Route: 048
  12. LOVASTATIN. [Concomitant]
     Active Substance: LOVASTATIN
     Dosage: 40 MILLIGRAM AT BED TIME
     Route: 048
  13. SINEMET [Suspect]
     Active Substance: CARBIDOPA\LEVODOPA
     Dosage: 23.75/ 95 MILLIGRAM
     Route: 048
  14. TAMSULOSIN [Concomitant]
     Active Substance: TAMSULOSIN
     Dosage: 0.8 MILLIGRAM, AT BED TIME
     Route: 048
  15. APIXABAN [Concomitant]
     Active Substance: APIXABAN
     Dosage: 2.5 MILLIGRAM, Q12H
     Route: 048
  16. SENNA ACUTIFOLIA [Concomitant]
     Indication: CONSTIPATION
     Dosage: 17.2 MILLIGRAM, TWICE DAY AS NEEDED
     Route: 048
  17. BUPROPION. [Concomitant]
     Active Substance: BUPROPION
     Dosage: 200 MILLIGRAM, TWICE A DAY
     Route: 048

REACTIONS (3)
  - Tremor [Unknown]
  - Dyskinesia [Unknown]
  - On and off phenomenon [Unknown]
